FAERS Safety Report 6441137-5 (Version None)
Quarter: 2009Q4

REPORT INFORMATION
  Report Type: 
  Country: None (occurrence: None)
  Receive Date: 20091116
  Receipt Date: 20091006
  Transmission Date: 20100525
  Serious: No
  Sender: FDA-Public Use
  Company Number: US-BAYER-200935804NA

PATIENT
  Age: 69 Year
  Sex: Female

DRUGS (10)
  1. ULTRAVIST 300 [Suspect]
     Indication: COMPUTERISED TOMOGRAM ABDOMEN
     Dosage: TOTAL DAILY DOSE: 100 ML  UNIT DOSE: 200 ML
     Route: 042
     Dates: start: 20091005, end: 20091005
  2. ACTONEL [Concomitant]
  3. ZETIA [Concomitant]
  4. LIPITOR [Concomitant]
  5. IMDUR [Concomitant]
  6. NORVASC [Concomitant]
  7. ^TENOMAN^ [Concomitant]
  8. PREDNISONE [Concomitant]
     Dosage: TOTAL DAILY DOSE: 50 MG
     Route: 048
  9. BENADRYL [Concomitant]
     Dosage: TOTAL DAILY DOSE: 50 MG
     Route: 048
     Dates: start: 20091005, end: 20091005
  10. E-Z-EM [Concomitant]
     Route: 048
     Dates: start: 20091005, end: 20091005

REACTIONS (1)
  - THROAT TIGHTNESS [None]
